FAERS Safety Report 5138797-8 (Version None)
Quarter: 2006Q4

REPORT INFORMATION
  Report Type: 
  Country: None (occurrence: None)
  Receive Date: 20061030
  Receipt Date: 20061020
  Transmission Date: 20070319
  Serious: Yes (Hospitalization)
  Sender: FDA-Public Use
  Company Number: 2006SE05714

PATIENT
  Age: 26833 Day
  Sex: Male

DRUGS (8)
  1. SELO-ZOK [Suspect]
     Indication: HYPERTENSION
     Route: 048
     Dates: end: 20061003
  2. NITROGLYCERIN [Suspect]
     Indication: ANGINA PECTORIS
     Dosage: WHEN NEEDED
     Route: 060
     Dates: end: 20061003
  3. GLUCOPHAGE [Suspect]
     Indication: DIABETES MELLITUS
     Route: 048
     Dates: end: 20061003
  4. AMLODIPINE [Concomitant]
     Indication: HYPERTENSION
     Route: 048
  5. OMNIC [Concomitant]
     Route: 048
  6. AMARYL [Concomitant]
     Indication: DIABETES MELLITUS
     Route: 048
  7. LIPITOR [Concomitant]
     Route: 048
  8. PHYSIOTENS [Concomitant]
     Indication: HYPERTENSION
     Route: 048

REACTIONS (3)
  - BRADYCARDIA [None]
  - METABOLIC ACIDOSIS [None]
  - SYNCOPE [None]
